FAERS Safety Report 8345473-7 (Version None)
Quarter: 2012Q2

REPORT INFORMATION
  Report Type: 
  Country: None (occurrence: None)
  Receive Date: 20120508
  Receipt Date: 20120502
  Transmission Date: 20120825
  Serious: Yes (Other)
  Sender: FDA-Public Use
  Company Number: US-BAYER-2012-043173

PATIENT
  Age: 72 Year
  Sex: Female
  Weight: 45.351 kg

DRUGS (1)
  1. ASPIRIN [Suspect]
     Indication: TOOTHACHE
     Dosage: 1 DF, TID, BOTTLE COUNT 24S
     Route: 048
     Dates: start: 20120401, end: 20120430

REACTIONS (3)
  - THROAT IRRITATION [None]
  - CHOKING [None]
  - SENSATION OF FOREIGN BODY [None]
